FAERS Safety Report 14858328 (Version 2)
Quarter: 2018Q4

REPORT INFORMATION
  Report Type: Spontaneous
  Country: RO (occurrence: RO)
  Receive Date: 20180508
  Receipt Date: 20181030
  Transmission Date: 20190204
  Serious: Yes (Death, Other)
  Sender: FDA-Public Use
  Company Number: RO-UCBSA-2018019822

PATIENT
  Age: 92 Year
  Sex: Female

DRUGS (3)
  1. VASAPROSTAN [Suspect]
     Active Substance: ALPROSTADIL
     Indication: PRODUCT USED FOR UNKNOWN INDICATION
     Dosage: UNK
     Route: 065
  2. VESSEL DUE [Suspect]
     Active Substance: SULODEXIDE
     Indication: PRODUCT USED FOR UNKNOWN INDICATION
     Dosage: UNK
     Route: 065
  3. ELIQUIS [Suspect]
     Active Substance: APIXABAN
     Indication: PRODUCT USED FOR UNKNOWN INDICATION
     Dosage: 1 DF, UNK  ADDITIONAL INFO: 1 DF = 2.5 (UNIT NOT SPECIFIED)

REACTIONS (1)
  - Death [Fatal]

NARRATIVE: CASE EVENT DATE: 20180403
